FAERS Safety Report 25731419 (Version 4)
Quarter: 2025Q4

REPORT INFORMATION
  Report Type: Spontaneous
  Country: JP (occurrence: JP)
  Receive Date: 20250827
  Receipt Date: 20251128
  Transmission Date: 20260118
  Serious: Yes (Hospitalization, Other)
  Sender: MERCK SHARP & DOHME LLC
  Company Number: JP-009507513-2322258

PATIENT
  Age: 76 Year
  Sex: Male

DRUGS (3)
  1. PEMBROLIZUMAB [Suspect]
     Active Substance: PEMBROLIZUMAB
     Indication: Oesophageal squamous cell carcinoma
     Dosage: 200MG ONCE EVERY 3 WEEKS.
     Route: 041
     Dates: start: 20240202
  2. FLUOROURACIL [Suspect]
     Active Substance: FLUOROURACIL
     Indication: Oesophageal squamous cell carcinoma
     Dosage: 800MG/M2 ?5/3 WEEKS (CONTINUOUS INTRAVENOUS INFUSION ON DAYS 1-5).
     Route: 041
     Dates: start: 202402
  3. CISPLATIN [Suspect]
     Active Substance: CISPLATIN
     Indication: Oesophageal squamous cell carcinoma
     Route: 041
     Dates: start: 202402

REACTIONS (3)
  - Agranulocytosis [Recovering/Resolving]
  - Immune-mediated hepatic disorder [Recovering/Resolving]
  - Immune-mediated cholangitis [Unknown]

NARRATIVE: CASE EVENT DATE: 20240401
